FAERS Safety Report 14097289 (Version 1)
Quarter: 2017Q4

REPORT INFORMATION
  Report Type: Spontaneous
  Country: US (occurrence: None)
  Receive Date: 20171016
  Receipt Date: 20171016
  Transmission Date: 20180321
  Serious: Yes (Other)
  Sender: FDA-Public Use
  Company Number: None

PATIENT
  Age: 62 Year
  Sex: Female

DRUGS (3)
  1. AMPYRA [Suspect]
     Active Substance: DALFAMPRIDINE
     Indication: MULTIPLE SCLEROSIS
     Route: 048
     Dates: start: 20171013
  2. OXYBUTYNIN. [Concomitant]
     Active Substance: OXYBUTYNIN CHLORIDE
  3. PLEGRIDY [Concomitant]
     Active Substance: PEGINTERFERON BETA-1A

REACTIONS (6)
  - Insomnia [None]
  - Fatigue [None]
  - Burning sensation [None]
  - Paraesthesia [None]
  - Inflammation [None]
  - Sensory disturbance [None]

NARRATIVE: CASE EVENT DATE: 20171016
